FAERS Safety Report 14127105 (Version 1)
Quarter: 2017Q4

REPORT INFORMATION
  Report Type: Spontaneous
  Country: US (occurrence: US)
  Receive Date: 20171026
  Receipt Date: 20171026
  Transmission Date: 20180321
  Serious: No
  Sender: FDA-Public Use
  Company Number: US-B.I. PHARMACEUTICALS,INC./RIDGEFIELD-2017-BI-057157

PATIENT
  Sex: Male

DRUGS (1)
  1. ATROVENT [Suspect]
     Active Substance: IPRATROPIUM BROMIDE
     Indication: CHRONIC OBSTRUCTIVE PULMONARY DISEASE
     Dosage: NR;  FORM STRENGTH: 17 MCG; FORMULATION: INHALATION AEROSOL? ADMINISTRATION CORRECT? NR(NOT REPORTED
     Route: 055

REACTIONS (1)
  - Drug ineffective [Unknown]
